FAERS Safety Report 20347465 (Version 1)
Quarter: 2022Q1

REPORT INFORMATION
  Report Type: Spontaneous
  Country: US (occurrence: US)
  Receive Date: 20220118
  Receipt Date: 20220118
  Transmission Date: 20220423
  Serious: No
  Sender: FDA-Public Use
  Company Number: US-PFIZER INC-2021613236

PATIENT
  Age: 93 Year
  Sex: Female
  Weight: 58.97 kg

DRUGS (1)
  1. IBRANCE [Suspect]
     Active Substance: PALBOCICLIB
     Dosage: 125 MG (ONE TABLET BY MOUTH EVERY DAY WITH FOOD 21 DAYS AND THEN 7 DAYS OFF)

REACTIONS (8)
  - Product dose omission issue [Unknown]
  - Product use complaint [Unknown]
  - Product packaging difficult to open [Unknown]
  - Product quality issue [Unknown]
  - Product packaging issue [Unknown]
  - Anxiety [Unknown]
  - Dysphagia [Unknown]
  - White blood cell count abnormal [Unknown]
